FAERS Safety Report 23396967 (Version 1)
Quarter: 2024Q1

REPORT INFORMATION
  Report Type: Spontaneous
  Country: US (occurrence: US)
  Receive Date: 20240112
  Receipt Date: 20240112
  Transmission Date: 20240410
  Serious: Yes (Hospitalization, Other)
  Sender: FDA-Public Use
  Company Number: US-HIKMA PHARMACEUTICALS USA INC.-US-H14001-24-00082

PATIENT
  Sex: Female

DRUGS (1)
  1. METHADONE [Suspect]
     Active Substance: METHADONE HYDROCHLORIDE
     Indication: Product used for unknown indication
     Dosage: UNKNOWN
     Route: 065

REACTIONS (8)
  - Urinary tract infection [Unknown]
  - Flushing [Unknown]
  - Hypertension [Unknown]
  - Pyrexia [Unknown]
  - Hypoaesthesia [Unknown]
  - Panic attack [Unknown]
  - Tremor [Unknown]
  - Withdrawal syndrome [Unknown]
